FAERS Safety Report 9414979 (Version 2)
Quarter: 2013Q3

REPORT INFORMATION
  Report Type: Spontaneous
  Country: US (occurrence: None)
  Receive Date: 20130718
  Receipt Date: 20130731
  Transmission Date: 20140515
  Serious: Yes (Other)
  Sender: FDA-Public Use
  Company Number: JPI-P-033562

PATIENT
  Age: 35 Year
  Sex: Female

DRUGS (6)
  1. XYREM [Suspect]
     Indication: NARCOLEPSY
     Route: 048
     Dates: start: 2009
  2. XYREM [Suspect]
     Indication: SOMNOLENCE
     Route: 048
     Dates: start: 2009
  3. ACETYLSALICYLIC ACID [Concomitant]
  4. PRENATAL VITAMINS [Concomitant]
  5. OMEGA-3 POLYUNSATURATED FATTY ACIDS [Concomitant]
  6. ENOXAPARIN SODIUM [Concomitant]

REACTIONS (5)
  - Human chorionic gonadotropin increased [None]
  - Progesterone increased [None]
  - Abortion spontaneous [None]
  - Pregnancy [None]
  - Maternal drugs affecting foetus [None]
